FAERS Safety Report 8859523 (Version 2)
Quarter: 2012Q4

REPORT INFORMATION
  Report Type: 
  Country: US (occurrence: US)
  Receive Date: 20121024
  Receipt Date: 20121102
  Transmission Date: 20130627
  Serious: Yes (Hospitalization, Disabling, Other)
  Sender: FDA-Public Use
  Company Number: US-009507513-1103USA00983

PATIENT

DRUGS (7)
  1. FOSAMAX [Suspect]
     Indication: OSTEOPOROSIS
     Dosage: 10 mg, UNK
     Route: 048
     Dates: start: 199510, end: 200010
  2. FOSAMAX [Suspect]
     Dosage: 70 mg, UNK
     Route: 048
     Dates: start: 200010, end: 200903
  3. FOSAMAX PLUS D [Suspect]
     Indication: OSTEOPOROSIS
     Dosage: 70 mg, UNK
     Route: 048
     Dates: start: 200010, end: 200903
  4. ALENDRONATE SODIUM [Suspect]
     Indication: OSTEOPOROSIS
     Dosage: 70 mg, UNK
     Route: 048
     Dates: start: 20090323, end: 20091112
  5. VITAMINS (UNSPECIFIED) [Concomitant]
     Dosage: 1 qd
     Route: 048
     Dates: start: 1990
  6. CORTICOSTEROIDS (UNSPECIFIED) [Concomitant]
     Dates: start: 1998, end: 2011
  7. MK-9039 [Concomitant]
     Dates: start: 19990101

REACTIONS (70)
  - Intramedullary rod insertion [Unknown]
  - Open reduction of fracture [Unknown]
  - Calcium deficiency [Unknown]
  - Vitamin D deficiency [Unknown]
  - Gingival disorder [Unknown]
  - Dental caries [Unknown]
  - Herpes virus infection [Unknown]
  - Syncope [Unknown]
  - Syncope [Recovered/Resolved]
  - Hypertension [Unknown]
  - Mental status changes [Recovered/Resolved]
  - Encephalopathy [Unknown]
  - Spinal column stenosis [Unknown]
  - Spinal compression fracture [Unknown]
  - Mitral valve incompetence [Unknown]
  - Laceration [Unknown]
  - Hypokalaemia [Unknown]
  - Femur fracture [Unknown]
  - Device failure [Unknown]
  - Fall [Unknown]
  - Anaemia [Unknown]
  - Anxiety [Unknown]
  - Pulmonary mass [Recovered/Resolved]
  - Scoliosis [Unknown]
  - Interstitial lung disease [Unknown]
  - Spinal compression fracture [Unknown]
  - Arthropathy [Unknown]
  - Arthropathy [Unknown]
  - Laceration [Not Recovered/Not Resolved]
  - Infection [Unknown]
  - Hepatitis A [Unknown]
  - Cervical dysplasia [Unknown]
  - Genital herpes [Unknown]
  - Skull fracture [Unknown]
  - Cerebral haematoma [Unknown]
  - Intervertebral disc degeneration [Unknown]
  - Surgical failure [Unknown]
  - Surgical failure [Unknown]
  - Emphysema [Unknown]
  - Interstitial lung disease [Unknown]
  - Diverticulum [Unknown]
  - Haemorrhoids [Unknown]
  - Squamous cell carcinoma of skin [Unknown]
  - Seborrhoeic keratosis [Unknown]
  - Interstitial lung disease [Unknown]
  - Aortic calcification [Unknown]
  - Pulmonary fibrosis [Unknown]
  - Adverse drug reaction [Unknown]
  - Pulmonary mass [Not Recovered/Not Resolved]
  - Fall [Unknown]
  - Convulsion [Unknown]
  - Clavicle fracture [Unknown]
  - Excoriation [Unknown]
  - Rotator cuff syndrome [Unknown]
  - Joint dislocation [Unknown]
  - Contusion [Unknown]
  - Laceration [Unknown]
  - Oropharyngeal pain [Unknown]
  - Pollakiuria [Unknown]
  - Increased tendency to bruise [Unknown]
  - Colon adenoma [Unknown]
  - Fall [Unknown]
  - Pain in extremity [Unknown]
  - Sciatica [Unknown]
  - Arthralgia [Unknown]
  - Hand fracture [Unknown]
  - Bone density decreased [Unknown]
  - Impaired healing [Unknown]
  - Femur fracture [Unknown]
  - Tooth extraction [Unknown]
